FAERS Safety Report 5091831-6 (Version None)
Quarter: 2006Q3

REPORT INFORMATION
  Report Type: 
  Country: None (occurrence: None)
  Receive Date: 20060829
  Receipt Date: 20060626
  Transmission Date: 20061208
  Serious: No
  Sender: FDA-Public Use
  Company Number: US-BRISTOL-MYERS SQUIBB COMPANY-13424395

PATIENT
  Age: 7 Decade
  Sex: Male
  Weight: 73 kg

DRUGS (2)
  1. ERBITUX [Suspect]
     Indication: COLON CANCER
     Route: 042
  2. IRINOTECAN HCL [Concomitant]
     Indication: COLON CANCER
     Route: 042

REACTIONS (1)
  - CARCINOEMBRYONIC ANTIGEN INCREASED [None]
